FAERS Safety Report 25622560 (Version 1)
Quarter: 2025Q3

REPORT INFORMATION
  Report Type: Spontaneous
  Country: US (occurrence: US)
  Receive Date: 20250730
  Receipt Date: 20250730
  Transmission Date: 20251020
  Serious: No
  Sender: PFIZER
  Company Number: US-PFIZER INC-PV202500091800

PATIENT
  Age: 61 Year
  Sex: Female

DRUGS (2)
  1. IBRANCE [Suspect]
     Active Substance: PALBOCICLIB
     Dates: end: 202505
  2. IBRANCE [Suspect]
     Active Substance: PALBOCICLIB
     Dates: start: 202505

REACTIONS (2)
  - Fatigue [Unknown]
  - Laboratory test abnormal [Unknown]
